FAERS Safety Report 20969596 (Version 2)
Quarter: 2022Q3

REPORT INFORMATION
  Report Type: Spontaneous
  Country: US (occurrence: US)
  Receive Date: 20220616
  Receipt Date: 20220702
  Transmission Date: 20221027
  Serious: Yes (Other)
  Sender: FDA-Public Use
  Company Number: US-TEVA-2022-US-2045667

PATIENT
  Age: 20 Year
  Sex: Male

DRUGS (3)
  1. LAMOTRIGINE [Suspect]
     Active Substance: LAMOTRIGINE
     Indication: Illusion
     Dosage: 200 MILLIGRAM DAILY;
     Route: 065
  2. CLONAZEPAM [Suspect]
     Active Substance: CLONAZEPAM
     Indication: Illusion
     Dosage: 1 MILLIGRAM DAILY;
     Route: 065
  3. ROPINIROLE [Suspect]
     Active Substance: ROPINIROLE
     Indication: Illusion
     Dosage: .75 MILLIGRAM DAILY;
     Route: 065

REACTIONS (2)
  - Mania [Recovering/Resolving]
  - Abnormal behaviour [Recovering/Resolving]
